FAERS Safety Report 8100473-7 (Version None)
Quarter: 2012Q1

REPORT INFORMATION
  Report Type: 
  Country: None (occurrence: None)
  Receive Date: 20120129
  Receipt Date: 20111101
  Transmission Date: 20120608
  Serious: No
  Sender: FDA-Public Use
  Company Number: US-ABBOTT-11P-163-0870456-00

PATIENT
  Sex: Female

DRUGS (4)
  1. HUMIRA [Suspect]
  2. HUMIRA [Suspect]
  3. HUMIRA [Suspect]
     Indication: PSORIASIS
     Dosage: DAY 1: 80MG, DAY 8: 40MG THEN 40MG ON DAY 22.
     Dates: start: 20111001, end: 20111001
  4. HUMIRA [Suspect]
     Indication: PSORIATIC ARTHROPATHY

REACTIONS (4)
  - CHILLS [None]
  - PYREXIA [None]
  - HEADACHE [None]
  - INFLUENZA [None]
